FAERS Safety Report 21903916 (Version 1)
Quarter: 2023Q1

REPORT INFORMATION
  Report Type: Spontaneous
  Country: US (occurrence: US)
  Receive Date: 20230124
  Receipt Date: 20230124
  Transmission Date: 20230418
  Serious: Yes (Hospitalization)
  Sender: FDA-Public Use
  Company Number: US-GSKCCFUS-Case-01605642_AE-90736

PATIENT

DRUGS (1)
  1. NUCALA [Suspect]
     Active Substance: MEPOLIZUMAB
     Indication: Product used for unknown indication
     Dosage: UNK
     Dates: start: 202204

REACTIONS (4)
  - Chronic obstructive pulmonary disease [Recovered/Resolved]
  - Cough [Recovered/Resolved]
  - Intervertebral disc protrusion [Not Recovered/Not Resolved]
  - Product dose omission issue [Unknown]

NARRATIVE: CASE EVENT DATE: 20221101
